FAERS Safety Report 5352653-1 (Version None)
Quarter: 2007Q2

REPORT INFORMATION
  Report Type: 
  Country: None (occurrence: None)
  Receive Date: 20070611
  Receipt Date: 20070530
  Transmission Date: 20071010
  Serious: Yes (Hospitalization)
  Sender: FDA-Public Use
  Company Number: US-ELI_LILLY_AND_COMPANY-US200702004420

PATIENT
  Age: 43 Year
  Sex: Male

DRUGS (2)
  1. CIALIS [Suspect]
     Indication: ERECTILE DYSFUNCTION
     Dosage: 20 MG, UNK
     Dates: start: 20060601, end: 20060702
  2. CIALIS [Suspect]
     Dosage: 10 MG, WEEKLY (1/W)

REACTIONS (6)
  - ABDOMINAL PAIN [None]
  - EYE INJURY [None]
  - INTESTINAL OBSTRUCTION [None]
  - INTRAOCULAR PRESSURE INCREASED [None]
  - VISION BLURRED [None]
  - VOMITING [None]
